FAERS Safety Report 14345602 (Version 2)
Quarter: 2018Q1

REPORT INFORMATION
  Report Type: Spontaneous
  Country: IT (occurrence: IT)
  Receive Date: 20180103
  Receipt Date: 20180117
  Transmission Date: 20180509
  Serious: Yes (Hospitalization)
  Sender: FDA-Public Use
  Company Number: PHHY2017IT197030

PATIENT
  Age: 17 Year
  Sex: Female

DRUGS (1)
  1. TEGRETOL [Suspect]
     Active Substance: CARBAMAZEPINE
     Indication: PRODUCT USED FOR UNKNOWN INDICATION
     Dosage: 1600 MG, TOTAL
     Route: 048

REACTIONS (3)
  - Vomiting [Unknown]
  - Fall [Unknown]
  - Drug abuse [Unknown]

NARRATIVE: CASE EVENT DATE: 20171016
